FAERS Safety Report 4954393-7 (Version None)
Quarter: 2006Q1

REPORT INFORMATION
  Report Type: 
  Country: None (occurrence: None)
  Receive Date: 20060322
  Receipt Date: 20060310
  Transmission Date: 20060701
  Serious: Yes (Other)
  Sender: FDA-Public Use
  Company Number: L06-GER-00428-01

PATIENT
  Age: 62 Year
  Sex: Female

DRUGS (10)
  1. CIPRALEX (ESCITALOPRAM) [Suspect]
     Indication: DEPRESSION
     Dosage: 10 MG QD PO
     Route: 048
  2. CIPRALEX (ESCITALOPRAM) [Suspect]
     Indication: DEPRESSION
     Dosage: 20 MG QD PO
     Route: 048
  3. CIPRALEX (ESCITALOPRAM) [Suspect]
     Indication: DEPRESSION
     Dosage: 10 MG QD PO
     Route: 048
  4. CIPRALEX (ESCITALOPRAM) [Suspect]
     Indication: DEPRESSION
     Dosage: 20 MG QD PO
     Route: 048
  5. ZOTEPINE [Suspect]
     Indication: PSYCHOTIC DISORDER
     Dosage: 50 MG QD PO
     Route: 048
  6. MESALAZINE [Concomitant]
  7. PANTOPRAZOLE [Concomitant]
  8. PROPRANOLOL [Concomitant]
  9. GLIMEPIRIDE [Concomitant]
  10. PHENPROCOUMON [Concomitant]

REACTIONS (3)
  - PSYCHOTIC DISORDER [None]
  - SEROTONIN SYNDROME [None]
  - THERAPY NON-RESPONDER [None]
